FAERS Safety Report 5877012-4 (Version None)
Quarter: 2008Q3

REPORT INFORMATION
  Report Type: 
  Country: None (occurrence: None)
  Receive Date: 20080910
  Receipt Date: 20080902
  Transmission Date: 20090109
  Serious: Yes (Other)
  Sender: FDA-Public Use
  Company Number: PHHY2008FR20281

PATIENT
  Sex: Male

DRUGS (4)
  1. ZOMETA [Suspect]
     Dosage: 1 DF, QMO
     Dates: start: 20050101, end: 20060101
  2. THALIDOMIDE [Concomitant]
     Route: 048
  3. MELPHALAN [Concomitant]
     Route: 048
  4. PREDNISONE TAB [Concomitant]
     Route: 048

REACTIONS (3)
  - OSTEONECROSIS [None]
  - SEQUESTRECTOMY [None]
  - TOOTH EXTRACTION [None]
